FAERS Safety Report 9338615 (Version 3)
Quarter: 2013Q3

REPORT INFORMATION
  Report Type: Report from Study
  Country: US (occurrence: US)
  Receive Date: 20130610
  Receipt Date: 20130723
  Transmission Date: 20140515
  Serious: Yes (Disabling, Other)
  Sender: FDA-Public Use
  Company Number: PHEH2013US012366

PATIENT
  Sex: Male

DRUGS (16)
  1. GILENYA [Suspect]
     Indication: MULTIPLE SCLEROSIS
     Dosage: 0.5 MG, QD
     Route: 048
     Dates: start: 201201
  2. LUMIGAN [Concomitant]
  3. ZOLOFT [Concomitant]
     Dosage: 50 MG, UNK
  4. RAMIPRIL [Concomitant]
     Dosage: 5 MG, UNK
  5. LAMICTAL [Concomitant]
     Dosage: 200 MG, UNK
  6. GLIPIZIDE [Concomitant]
     Dosage: 5 MG, UNK
  7. RANITIDINE [Concomitant]
     Dosage: 150 MG, UNK
  8. FLONASE [Concomitant]
  9. MECLIZINE [Concomitant]
     Dosage: 25 MG, UNK
  10. PROVIGIL [Concomitant]
     Dosage: 200 MG, UNK
  11. VYTORIN [Concomitant]
  12. ARICEPT [Concomitant]
     Dosage: 10 MG, UNK
  13. TIGAN [Concomitant]
     Dosage: 300 MG, UNK
  14. NUEDEXTA [Concomitant]
  15. ZYRTEC [Concomitant]
     Dosage: 10 MG, UNK
  16. ASPIRIN [Concomitant]
     Dosage: 81 MG, UNK

REACTIONS (2)
  - Grand mal convulsion [Unknown]
  - Multiple sclerosis relapse [Recovering/Resolving]
